FAERS Safety Report 4583315-6 (Version None)
Quarter: 2005Q1

REPORT INFORMATION
  Report Type: 
  Country: None (occurrence: None)
  Receive Date: 20050125
  Receipt Date: 20040930
  Transmission Date: 20050727
  Serious: No
  Sender: FDA-Public Use
  Company Number: USA040465039

PATIENT
  Age: 69 Year
  Sex: Female

DRUGS (8)
  1. FORTEO [Suspect]
     Indication: OSTEOPOROSIS
     Dosage: 20 UG DAY
     Dates: start: 20040201
  2. DARVOCET-N 100 [Concomitant]
  3. LORTAB [Concomitant]
  4. LIBRAX [Concomitant]
  5. MIRALAX [Concomitant]
  6. NORVASC [Concomitant]
  7. VITAMIN B-12 [Concomitant]
  8. MULTI-VITAMIN [Concomitant]

REACTIONS (2)
  - ABDOMINAL PAIN [None]
  - BONE DENSITY DECREASED [None]
